FAERS Safety Report 15975972 (Version 1)
Quarter: 2019Q1

REPORT INFORMATION
  Report Type: Spontaneous
  Country: US (occurrence: US)
  Receive Date: 20190218
  Receipt Date: 20190218
  Transmission Date: 20190418
  Serious: Yes (Hospitalization)
  Sender: FDA-Public Use
  Company Number: PHHY2019US033571

PATIENT
  Age: 54 Year
  Sex: Male

DRUGS (2)
  1. DABRAFENIB [Suspect]
     Active Substance: DABRAFENIB
     Indication: METASTATIC MALIGNANT MELANOMA
     Dosage: UNK
     Route: 065
  2. TRAMETINIB [Suspect]
     Active Substance: TRAMETINIB
     Indication: METASTATIC MALIGNANT MELANOMA
     Dosage: UNK
     Route: 065

REACTIONS (7)
  - Hyponatraemia [Unknown]
  - Upper respiratory tract infection [Unknown]
  - Skin toxicity [Unknown]
  - Pyrexia [Unknown]
  - Rash [Recovered/Resolved]
  - Blood creatinine increased [Unknown]
  - Lymphopenia [Unknown]
